FAERS Safety Report 26017459 (Version 1)
Quarter: 2025Q4

REPORT INFORMATION
  Report Type: Spontaneous
  Country: EU (occurrence: EU)
  Receive Date: 20251110
  Receipt Date: 20251110
  Transmission Date: 20260117
  Serious: Yes (Hospitalization)
  Sender: ROCHE
  Company Number: None

PATIENT
  Age: 76 Year
  Sex: Female
  Weight: 62.5 kg

DRUGS (13)
  1. CELLCEPT [Suspect]
     Active Substance: MYCOPHENOLATE MOFETIL
     Indication: Product used for unknown indication
     Route: 065
  2. RECOMBINANT STABILIZED RSV A PREFUSION F ANTIGEN\RECOMBINANT STABILIZE [Suspect]
     Active Substance: RECOMBINANT STABILIZED RSV A PREFUSION F ANTIGEN\RECOMBINANT STABILIZED RSV B PREFUSION F ANTIGEN
     Indication: Respiratory syncytial virus immunisation
     Route: 030
     Dates: start: 20250902, end: 20250902
  3. BILASTINE [Concomitant]
     Active Substance: BILASTINE
  4. Bisoprolol EG 2,5 MG [Concomitant]
  5. DAFALGAN [Concomitant]
     Active Substance: ACETAMINOPHEN
  6. DOXYCYCLINE SANDOZ 100 MG [Concomitant]
  7. HUMULIN 70/30 [Concomitant]
     Active Substance: INSULIN HUMAN
  8. Medrol 8MG [Concomitant]
  9. MOVICOL [Concomitant]
     Active Substance: POLYETHYLENE GLYCOL 3350\POTASSIUM CHLORIDE\SODIUM BICARBONATE\SODIUM CHLORIDE
  10. MUCODOX [Concomitant]
  11. Pantomed 20 MG [Concomitant]
  12. Sipralexa 10 MG [Concomitant]
  13. Sulpiride EG 200 MG [Concomitant]

REACTIONS (9)
  - Hypertension [Recovering/Resolving]
  - Pain in extremity [Recovering/Resolving]
  - Malaise [Recovering/Resolving]
  - Infection [Recovering/Resolving]
  - Decreased appetite [Recovering/Resolving]
  - General physical health deterioration [Recovering/Resolving]
  - Leukocytosis [Recovering/Resolving]
  - C-reactive protein increased [Recovering/Resolving]
  - Neutrophilia [Recovering/Resolving]

NARRATIVE: CASE EVENT DATE: 20250905
